FAERS Safety Report 23720399 (Version 1)
Quarter: 2024Q2

REPORT INFORMATION
  Report Type: Spontaneous
  Country: EG (occurrence: EG)
  Receive Date: 20240408
  Receipt Date: 20240408
  Transmission Date: 20240716
  Serious: Yes (Death, Hospitalization)
  Sender: FDA-Public Use
  Company Number: EG-002147023-NVSC2024EG073816

PATIENT
  Age: 48 Year
  Sex: Male
  Weight: 65 kg

DRUGS (1)
  1. VOTRIENT [Suspect]
     Active Substance: PAZOPANIB HYDROCHLORIDE
     Indication: Colon cancer
     Dosage: 400 MG, QD
     Route: 065
     Dates: start: 202312, end: 20240120

REACTIONS (3)
  - Death [Fatal]
  - Melaena [Unknown]
  - Seizure [Unknown]

NARRATIVE: CASE EVENT DATE: 20240120
